FAERS Safety Report 9950646 (Version 2)
Quarter: 2014Q1

REPORT INFORMATION
  Report Type: Report from Study
  Country: US (occurrence: US)
  Receive Date: 20140304
  Receipt Date: 20140304
  Transmission Date: 20141002
  Serious: No
  Sender: FDA-Public Use
  Company Number: US-ABBVIE-13P-163-1044513-00

PATIENT
  Age: 48 Year
  Sex: Female
  Weight: 98.06 kg

DRUGS (4)
  1. HUMIRA [Suspect]
     Indication: RHEUMATOID ARTHRITIS
     Route: 058
     Dates: start: 201001
  2. METHOTREXATE [Concomitant]
     Indication: RHEUMATOID ARTHRITIS
     Dosage: 5 2.5 MG TABLETS WEEKLY
     Route: 048
     Dates: start: 2009
  3. FOLIC ACID [Concomitant]
     Indication: PROPHYLAXIS
     Dates: start: 2009
  4. MULTIVITAMINS [Concomitant]
     Indication: VITAMIN SUPPLEMENTATION

REACTIONS (5)
  - Drug dose omission [Unknown]
  - Foot fracture [Recovering/Resolving]
  - Nasopharyngitis [Unknown]
  - Gait disturbance [Recovered/Resolved]
  - Sinusitis [Not Recovered/Not Resolved]
